FAERS Safety Report 8309437-1 (Version None)
Quarter: 2012Q2

REPORT INFORMATION
  Report Type: 
  Country: None (occurrence: None)
  Receive Date: 20120420
  Receipt Date: 20120407
  Transmission Date: 20120825
  Serious: Yes (Hospitalization)
  Sender: FDA-Public Use
  Company Number: AUR-APL-2012-01574

PATIENT
  Age: 88 Year
  Sex: Female
  Weight: 57.6068 kg

DRUGS (9)
  1. PANTOPRAZOLE [Concomitant]
  2. CEFTRIAXONE [Concomitant]
  3. ATENOLOL [Concomitant]
  4. AMIODARONE HCL [Suspect]
     Indication: ATRIAL FIBRILLATION
     Dosage: 400 MG (200 MG, 2 IN 1 D), ORAL
     Route: 048
  5. CHLROTHALIDONE (CHLORTALIDONE) [Concomitant]
  6. VITAMIN B12 [Concomitant]
  7. NAPROXEN [Suspect]
     Indication: MUSCULOSKELETAL PAIN
     Dosage: 440 MG (220 MG, 2 IN 1 D), ORAL
     Route: 048
  8. POTASSIUM CHLORIDE [Suspect]
     Indication: PRODUCT USED FOR UNKNOWN INDICATION
     Dosage: (10 MILLIEQUIVALENTS, 1 D), ORAL
     Route: 048
  9. LISINOPRIL [Concomitant]

REACTIONS (16)
  - URINARY TRACT INFECTION [None]
  - BLOOD THYROID STIMULATING HORMONE INCREASED [None]
  - ASTHENIA [None]
  - WEIGHT DECREASED [None]
  - SELF-MEDICATION [None]
  - ATRIAL FIBRILLATION [None]
  - FATIGUE [None]
  - VITAMIN D DEFICIENCY [None]
  - DUODENAL ULCER HAEMORRHAGE [None]
  - CONSTIPATION [None]
  - ABASIA [None]
  - GASTRIC ULCER HAEMORRHAGE [None]
  - OSTEOPOROSIS [None]
  - IRON DEFICIENCY ANAEMIA [None]
  - DECREASED APPETITE [None]
  - DIASTOLIC DYSFUNCTION [None]
